FAERS Safety Report 4594373-7 (Version None)
Quarter: 2005Q1

REPORT INFORMATION
  Report Type: 
  Country: None (occurrence: None)
  Receive Date: 20050301
  Receipt Date: 20041208
  Transmission Date: 20050727
  Serious: No
  Sender: FDA-Public Use
  Company Number: US-GLAXOSMITHKLINE-A0536621A

PATIENT
  Age: 34 Year
  Sex: Male

DRUGS (2)
  1. VALTREX [Suspect]
     Dosage: 1G PER DAY
     Route: 048
     Dates: end: 20041204
  2. NO CONCURRENT MEDICATION [Concomitant]

REACTIONS (2)
  - ARTHRALGIA [None]
  - MUSCLE TWITCHING [None]
